FAERS Safety Report 14351855 (Version 2)
Quarter: 2018Q1

REPORT INFORMATION
  Report Type: Spontaneous
  Country: US (occurrence: US)
  Receive Date: 20180104
  Receipt Date: 20180111
  Transmission Date: 20180509
  Serious: Yes (Hospitalization, Other)
  Sender: FDA-Public Use
  Company Number: US-FRESENIUS MEDICAL CARE RENAL THERAPIES GROUP-FMC-1801-000026

PATIENT
  Sex: Male

DRUGS (10)
  1. DELFLEX [Suspect]
     Active Substance: CALCIUM CHLORIDE\DEXTROSE\MAGNESIUM CHLORIDE\SODIUM CHLORIDE\SODIUM LACTATE
     Indication: END STAGE RENAL DISEASE
     Route: 033
  2. MIDODRINE [Concomitant]
     Active Substance: MIDODRINE
  3. NIFEDIPINE. [Concomitant]
     Active Substance: NIFEDIPINE
  4. ASCORBIC ACID. [Concomitant]
     Active Substance: ASCORBIC ACID
  5. TEMAZEPAM. [Concomitant]
     Active Substance: TEMAZEPAM
  6. VITAMIN D [Concomitant]
     Active Substance: CHOLECALCIFEROL
  7. SODIUM BICARBONATE. [Concomitant]
     Active Substance: SODIUM BICARBONATE
  8. CALCIUM-VITAMIN D [Concomitant]
  9. HYDROCODONE-ACETAMINOPHEN [Concomitant]
     Active Substance: ACETAMINOPHEN\HYDROCODONE
  10. SEVELAMER [Concomitant]
     Active Substance: SEVELAMER

REACTIONS (2)
  - Peritonitis bacterial [Recovering/Resolving]
  - Blood pressure decreased [Unknown]
